FAERS Safety Report 9356679 (Version 1)
Quarter: 2013Q2

REPORT INFORMATION
  Report Type: Spontaneous
  Country: US (occurrence: US)
  Receive Date: 20130619
  Receipt Date: 20130619
  Transmission Date: 20140414
  Serious: Yes (Other)
  Sender: FDA-Public Use
  Company Number: US-BAXTER-2013BAX022682

PATIENT
  Age: 67 Year
  Sex: Male

DRUGS (3)
  1. VANCOMYCIN INJECTION, USP [Suspect]
     Indication: STAPHYLOCOCCAL INFECTION
     Route: 042
  2. TOBRAMYCIN [Suspect]
     Indication: STAPHYLOCOCCAL INFECTION
     Route: 065
  3. HYDROMORPHONE [Concomitant]
     Indication: PRODUCT USED FOR UNKNOWN INDICATION
     Route: 042

REACTIONS (2)
  - Nephropathy toxic [Recovered/Resolved]
  - Renal tubular necrosis [Recovered/Resolved]
